FAERS Safety Report 6144384-5 (Version None)
Quarter: 2009Q2

REPORT INFORMATION
  Report Type: 
  Country: None (occurrence: None)
  Receive Date: 20090401
  Receipt Date: 20080408
  Transmission Date: 20091009
  Serious: Yes (Hospitalization)
  Sender: FDA-Public Use
  Company Number: 026284

PATIENT
  Age: 18 Year
  Sex: Male

DRUGS (3)
  1. ADDERALL 15 [Suspect]
     Dosage: 15 MG, QD, ORAL
     Route: 048
     Dates: start: 20070101, end: 20070101
  2. ALEVE [Concomitant]
  3. HYDROXYCUT [Concomitant]

REACTIONS (1)
  - RHABDOMYOLYSIS [None]
